FAERS Safety Report 4456644-4 (Version None)
Quarter: 2004Q3

REPORT INFORMATION
  Report Type: 
  Country: None (occurrence: None)
  Receive Date: 20040921
  Receipt Date: 20040908
  Transmission Date: 20050211
  Serious: Yes (Other)
  Sender: FDA-Public Use
  Company Number: 2004063808

PATIENT
  Age: 13 Year
  Sex: Female
  Weight: 26.7622 kg

DRUGS (2)
  1. ZYRTEC [Suspect]
     Indication: ASTHMA
     Dosage: 10 MG (10 MG, 1 IN 1 D), ORAL
     Route: 048
     Dates: start: 20000101
  2. SERETIDE MITE (FLUTICASONE PROPIONATE,  SALMETEROL XINAFOATE) [Concomitant]

REACTIONS (4)
  - HEPATOSPLENOMEGALY [None]
  - THROMBOCYTOPENIA [None]
  - VIRAL INFECTION [None]
  - WHITE BLOOD CELL COUNT DECREASED [None]
